FAERS Safety Report 17015695 (Version 1)
Quarter: 2019Q4

REPORT INFORMATION
  Report Type: Spontaneous
  Country: CZ (occurrence: CZ)
  Receive Date: 20191111
  Receipt Date: 20191111
  Transmission Date: 20200122
  Serious: Yes (Hospitalization)
  Sender: FDA-Public Use
  Company Number: CZ-PFIZER INC-2019482124

PATIENT
  Age: 30 Year
  Sex: Female

DRUGS (11)
  1. CEFTAZIDIM [Suspect]
     Active Substance: CEFTAZIDIME
     Indication: BURKHOLDERIA CEPACIA COMPLEX INFECTION
     Dosage: UNK
     Dates: start: 2019, end: 2019
  2. AMIKACIN. [Suspect]
     Active Substance: AMIKACIN
     Indication: BURKHOLDERIA CEPACIA COMPLEX INFECTION
     Dosage: UNK
     Dates: start: 2019, end: 2019
  3. AMIKACIN. [Suspect]
     Active Substance: AMIKACIN
     Indication: CONDITION AGGRAVATED
  4. CHLORAMPHENICOL [Suspect]
     Active Substance: CHLORAMPHENICOL
     Indication: BURKHOLDERIA CEPACIA COMPLEX INFECTION
     Dosage: UNK
     Dates: start: 20190426
  5. DOXYCYKLIN EBB [Suspect]
     Active Substance: DOXYCYCLINE
     Indication: BURKHOLDERIA CEPACIA COMPLEX INFECTION
     Dosage: UNK
     Dates: start: 2019, end: 2019
  6. DOXYCYKLIN EBB [Suspect]
     Active Substance: DOXYCYCLINE
     Indication: CONDITION AGGRAVATED
  7. COTRIMOXAZOL [Suspect]
     Active Substance: SULFAMETHOXAZOLE\TRIMETHOPRIM
     Indication: BURKHOLDERIA CEPACIA COMPLEX INFECTION
     Dosage: UNK
     Dates: start: 20190426
  8. COTRIMOXAZOL [Suspect]
     Active Substance: SULFAMETHOXAZOLE\TRIMETHOPRIM
     Indication: CONDITION AGGRAVATED
  9. MEROPENEM. [Suspect]
     Active Substance: MEROPENEM
     Indication: BURKHOLDERIA CEPACIA COMPLEX INFECTION
     Dosage: UNK
     Dates: start: 2019
  10. CEFTAZIDIM [Suspect]
     Active Substance: CEFTAZIDIME
     Indication: CONDITION AGGRAVATED
  11. CHLORAMPHENICOL [Suspect]
     Active Substance: CHLORAMPHENICOL
     Indication: CONDITION AGGRAVATED

REACTIONS (1)
  - Disease progression [Recovered/Resolved]

NARRATIVE: CASE EVENT DATE: 2019
